FAERS Safety Report 9630137 (Version 3)
Quarter: 2013Q4

REPORT INFORMATION
  Report Type: Report from Study
  Country: AR (occurrence: AR)
  Receive Date: 20131017
  Receipt Date: 20131105
  Transmission Date: 20140711
  Serious: Yes (Other)
  Sender: FDA-Public Use
  Company Number: PHHY2013AR116704

PATIENT
  Sex: Male

DRUGS (2)
  1. DIOVAN [Suspect]
     Indication: HYPERTENSION
     Dosage: 1 DF, (80 MG) DAILY
     Route: 048
     Dates: start: 201307, end: 20131015
  2. DIOVAN [Suspect]
     Dosage: 1 DF, (160 MG)
     Route: 048
     Dates: start: 20131016

REACTIONS (3)
  - Prostate cancer [Not Recovered/Not Resolved]
  - Neoplasm malignant [Not Recovered/Not Resolved]
  - Blood pressure increased [Not Recovered/Not Resolved]
